FAERS Safety Report 17204408 (Version 2)
Quarter: 2020Q1

REPORT INFORMATION
  Report Type: Spontaneous
  Country: US (occurrence: US)
  Receive Date: 20191226
  Receipt Date: 20200305
  Transmission Date: 20200409
  Serious: Yes (Death, Hospitalization, Other)
  Sender: FDA-Public Use
  Company Number: US-PFIZER INC-2019552693

PATIENT
  Age: 86 Year
  Sex: Male
  Weight: 61.23 kg

DRUGS (21)
  1. LASIX [Concomitant]
     Active Substance: FUROSEMIDE
     Indication: ABDOMINAL DISTENSION
     Dosage: 80 MG, UNK
  2. CRANBERRY. [Concomitant]
     Active Substance: CRANBERRY
     Dosage: 500 MG, UNK
  3. CALCIUM + D3 [Concomitant]
     Active Substance: CALCIUM\CHOLECALCIFEROL
     Dosage: UNK
  4. TENORMIN [Concomitant]
     Active Substance: ATENOLOL
     Indication: BLOOD PRESSURE ABNORMAL
     Dosage: 50 MG
  5. SYNTHROID [Concomitant]
     Active Substance: LEVOTHYROXINE SODIUM
     Indication: THYROID DISORDER
     Dosage: 1 MG, UNK
  6. CARDURA [Concomitant]
     Active Substance: DOXAZOSIN MESYLATE
     Dosage: 8 MG, UNK (1)
  7. QUNOL LIQUID COQ10 [Concomitant]
     Dosage: 100 MG, UNK
  8. IRON [Concomitant]
     Active Substance: IRON
     Dosage: 45 MG SLOW RELEASE
  9. ZOMETA [Concomitant]
     Active Substance: ZOLEDRONIC ACID
     Dosage: UNK
     Route: 042
  10. PRAVACHOL [Concomitant]
     Active Substance: PRAVASTATIN SODIUM
     Indication: BLOOD CHOLESTEROL ABNORMAL
     Dosage: 80 MG, UNK (1)
  11. NITROSTAT [Concomitant]
     Active Substance: NITROGLYCERIN
     Dosage: 4 MG, AS NEEDED (EMERGENCY/HEART 4 MG UNDER TONGUE AS NEEDED)
  12. OXYCODONE AND ACETAMINOPHEN [Concomitant]
     Active Substance: ACETAMINOPHEN\OXYCODONE HYDROCHLORIDE
     Dosage: UNK, 4X/DAY(10/320 MG EVERY 6 HRS)
  13. MIRALAX [Concomitant]
     Active Substance: POLYETHYLENE GLYCOL 3350
     Dosage: 17 G, AS NEEDED
  14. FLONASE [Concomitant]
     Active Substance: FLUTICASONE PROPIONATE
     Indication: DYSPNOEA
     Dosage: 50 UG, AS NEEDED
  15. GABAPENTIN. [Suspect]
     Active Substance: GABAPENTIN
     Indication: NERVE COMPRESSION
     Dosage: 300 MG, ONCE A DAY
     Dates: start: 20171004
  16. XTANDI [Concomitant]
     Active Substance: ENZALUTAMIDE
     Dosage: 40 MG, UNK
  17. LASIX [Concomitant]
     Active Substance: FUROSEMIDE
     Indication: SWELLING
  18. BABY ASPIRIN [Concomitant]
     Active Substance: ASPIRIN
     Dosage: 81 MG,
  19. CARDIZEM [Concomitant]
     Active Substance: DILTIAZEM HYDROCHLORIDE
     Indication: BLOOD PRESSURE ABNORMAL
     Dosage: 180 MG,
  20. COUMADIN [Concomitant]
     Active Substance: WARFARIN SODIUM
     Dosage: 3 MG, 1X/DAY(3 MG EVERY NIGHT 1)
  21. FISH OIL OMEGA 3 [Concomitant]
     Active Substance: FISH OIL
     Dosage: 1000 MG,

REACTIONS (14)
  - Blood pressure decreased [Recovered/Resolved]
  - Feeling abnormal [Unknown]
  - Malaise [Recovered/Resolved]
  - Thinking abnormal [Recovered/Resolved]
  - Gangrene [Unknown]
  - Weight decreased [Unknown]
  - Off label use [Unknown]
  - Asthenia [Unknown]
  - Product use in unapproved indication [Unknown]
  - Myocardial infarction [Fatal]
  - Blister [Unknown]
  - Heart rate increased [Recovered/Resolved]
  - Pallor [Unknown]
  - Oral pain [Unknown]

NARRATIVE: CASE EVENT DATE: 20171004
